FAERS Safety Report 19263699 (Version 2)
Quarter: 2021Q2

REPORT INFORMATION
  Report Type: Other
  Country: GB (occurrence: GB)
  Receive Date: 20210517
  Receipt Date: 20210625
  Transmission Date: 20210717
  Serious: Yes (Other)
  Sender: FDA-Public Use
  Company Number: GB-MACLEODS PHARMA UK LTD-MAC2021031116

PATIENT

DRUGS (7)
  1. TADALAFIL. [Suspect]
     Active Substance: TADALAFIL
     Dosage: 7.5 MILLIGRAM MILPHARM, FILM?COATED TABLET AND 5MG ON ALTERNATE DAYS
     Route: 048
     Dates: start: 20210401
  2. NASOFAN AQUEOUS [Concomitant]
     Active Substance: FLUTICASONE PROPIONATE
     Indication: NASAL CONGESTION
     Dosage: 50 MICROGRAM, BID, 1 DOSAGE FORM, BID, ONE PUFF EACH NOSTRIL MORNING AND EVENING
  3. SILDENAFIL 100 MG TABLET [Suspect]
     Active Substance: SILDENAFIL
     Indication: PRODUCT USED FOR UNKNOWN INDICATION
     Dosage: 100 MILLIGRAM
     Route: 048
  4. TAMSULOSIN [Concomitant]
     Active Substance: TAMSULOSIN
     Indication: BENIGN PROSTATIC HYPERPLASIA
     Dosage: 1 DOSAGE FORM, QD
     Route: 048
     Dates: start: 201701
  5. TADALAFIL. [Suspect]
     Active Substance: TADALAFIL
     Indication: ERECTILE DYSFUNCTION
     Dosage: 5 MILLIGRAM, QD, FILM?COATED TABLET
     Route: 048
     Dates: start: 20210224, end: 20210325
  6. TADALAFIL. [Suspect]
     Active Substance: TADALAFIL
     Indication: BENIGN PROSTATIC HYPERPLASIA
     Dosage: 7.5 MILLIGRAM FILM COATED TABLET, (MILPHARM) 5 MG PLUS HALF OF 5 MG TABLET
     Route: 048
     Dates: start: 20210325, end: 20210401
  7. TADALAFIL. [Suspect]
     Active Substance: TADALAFIL
     Dosage: 2 DOSAGE FORM, TABLETS, TEVA, ON TWO CONSECUTIVE DAYS
     Route: 065

REACTIONS (8)
  - Nasal congestion [Recovering/Resolving]
  - Wrong technique in product usage process [Unknown]
  - Off label use [Unknown]
  - Pollakiuria [Recovered/Resolved]
  - Visual impairment [Recovered/Resolved]
  - Product substitution issue [Unknown]
  - Erectile dysfunction [Recovered/Resolved]
  - Drug ineffective [Recovered/Resolved]

NARRATIVE: CASE EVENT DATE: 201701
